FAERS Safety Report 23019558 (Version 1)
Quarter: 2023Q4

REPORT INFORMATION
  Report Type: Spontaneous
  Country: RU (occurrence: RU)
  Receive Date: 20231003
  Receipt Date: 20231003
  Transmission Date: 20240110
  Serious: Yes (Hospitalization, Other)
  Sender: FDA-Public Use
  Company Number: RU-PURACAP-RU-2023EPCLIT01445

PATIENT
  Age: 69 Year
  Sex: Male

DRUGS (5)
  1. NAPROXEN SODIUM [Suspect]
     Active Substance: NAPROXEN SODIUM
     Indication: Pain
     Route: 065
     Dates: start: 2018
  2. CAFFEINE [Suspect]
     Active Substance: CAFFEINE
     Indication: Pain
     Route: 065
     Dates: start: 2018
  3. DROTAVERINE HYDROCHLORIDE [Suspect]
     Active Substance: DROTAVERINE HYDROCHLORIDE
     Indication: Pain
     Route: 065
  4. PHENIRAMINE [Suspect]
     Active Substance: PHENIRAMINE
     Indication: Pain
     Route: 065
  5. ADEMETIONINE [Concomitant]
     Active Substance: ADEMETIONINE
     Indication: Product used for unknown indication
     Route: 051
     Dates: start: 20210204

REACTIONS (1)
  - Hepatotoxicity [Unknown]
